FAERS Safety Report 22592860 (Version 3)
Quarter: 2023Q2

REPORT INFORMATION
  Report Type: Report from Study
  Country: DE (occurrence: DE)
  Receive Date: 20230613
  Receipt Date: 20230628
  Transmission Date: 20230721
  Serious: Yes (Hospitalization, Other)
  Sender: FDA-Public Use
  Company Number: DE-ABBVIE-5286787

PATIENT
  Age: 77 Year
  Sex: Male
  Weight: 77 kg

DRUGS (9)
  1. CARBIDOPA\LEVODOPA [Suspect]
     Active Substance: CARBIDOPA\LEVODOPA
     Indication: Parkinson^s disease
     Dosage: MD: 4.5ML; CRD: 5.0ML/H; CRN: 2.2ML/H; ED: 1.0ML
     Route: 050
     Dates: start: 20230228
  2. CARBIDOPA\LEVODOPA [Suspect]
     Active Substance: CARBIDOPA\LEVODOPA
     Indication: Parkinsonism
     Dosage: MD: 4.5ML; CRD: 5.0ML/H; CRN: 2.2ML/H; ED: 1.0ML
     Route: 050
     Dates: start: 20230228
  3. CARBIDOPA\LEVODOPA [Suspect]
     Active Substance: CARBIDOPA\LEVODOPA
     Dosage: CRD: 5,2 ML/H
     Route: 050
     Dates: start: 2023
  4. DIGITOXIN [Concomitant]
     Active Substance: DIGITOXIN
     Indication: Atrial fibrillation
     Dosage: START DATE TEXT: BEFORE 2022
     Route: 048
  5. MIRTAZAPINE [Concomitant]
     Active Substance: MIRTAZAPINE
     Indication: Sleep disorder
     Dosage: START DATE TEXT: BEFORE 2022
     Route: 048
  6. ELIQUIS [Concomitant]
     Active Substance: APIXABAN
     Indication: Atrial fibrillation
     Dosage: START DATE TEXT: BEFORE 2022
     Route: 048
  7. SILODOSIN [Concomitant]
     Active Substance: SILODOSIN
     Indication: Benign prostatic hyperplasia
     Dosage: START DATE TEXT: BEFORE 2022
     Route: 048
  8. DOMPERIDONE [Concomitant]
     Active Substance: DOMPERIDONE
     Indication: Impaired gastric emptying
     Dosage: FREQUENCY TEXT: UP TO 3 TIMES A DAY
     Route: 048
     Dates: start: 20230228
  9. CARVEDILOL [Concomitant]
     Active Substance: CARVEDILOL
     Indication: Atrial fibrillation
     Dosage: START DATE TEXT: BEFORE 2022
     Route: 048

REACTIONS (2)
  - Haemorrhage intracranial [Recovered/Resolved]
  - Fall [Recovered/Resolved]

NARRATIVE: CASE EVENT DATE: 20230605
